FAERS Safety Report 8343602-2 (Version None)
Quarter: 2012Q2

REPORT INFORMATION
  Report Type: 
  Country: None (occurrence: None)
  Receive Date: 20120504
  Receipt Date: 20120426
  Transmission Date: 20120825
  Serious: Yes (Other)
  Sender: FDA-Public Use
  Company Number: 2011HGS-003003

PATIENT
  Age: 48 Year
  Sex: Female
  Weight: 88.905 kg

DRUGS (17)
  1. PAXIL [Concomitant]
  2. VITAMIN B12 (CYANOCOBALAMIN) (CYANOCOBALAMIN) [Concomitant]
  3. ARAVA (LEFLUNOMIDE) (LEFLUNOMIDE) [Concomitant]
  4. OMEPRAZOLE [Concomitant]
  5. GEODON (ZIPRASIDONE HYDROCHLORIDE) (ZIPRASIDONE HYDROCHLORIDE) [Concomitant]
  6. TRICOR (ADENOSINE) (ADENOSINE) [Concomitant]
  7. TRAZODONE (TRAZODONE) (TRAZODONE) [Concomitant]
  8. BENLYSTA [Suspect]
     Indication: SYSTEMIC LUPUS ERYTHEMATOSUS
     Dosage: 1 IN 28 D, INTRAVENOUS DRIP
     Route: 041
     Dates: start: 20111201
  9. KLONOPIN [Concomitant]
  10. CELLCEPT (MYCOPHENOLATE MOFETIL) (MYCOPHENOLATE MOFETIL) [Concomitant]
  11. ESTRADIOL [Concomitant]
  12. FOLIC ACID [Concomitant]
  13. NEURONTIN [Concomitant]
  14. HYDROCODONE (HYDROCODONE) (HYDROCODONE) [Concomitant]
  15. ASPIRIN [Concomitant]
  16. SAVELLA (MILNACIPRAN HYDROCHLORIDE) (MILNACIPRAN HYDROCHLORIDE) [Concomitant]
  17. LOVAZA (OMEGA-3 MARINE TRIGLYCERIDES) (OMEGA-3 MARINE TRIGLYCERIDES) [Concomitant]

REACTIONS (12)
  - CHEST PAIN [None]
  - PYREXIA [None]
  - PHARYNGEAL OEDEMA [None]
  - NAUSEA [None]
  - GASTROOESOPHAGEAL REFLUX DISEASE [None]
  - DECREASED APPETITE [None]
  - DIARRHOEA [None]
  - THROAT IRRITATION [None]
  - SWOLLEN TONGUE [None]
  - PSYCHOTIC DISORDER [None]
  - MIGRAINE [None]
  - PARAESTHESIA ORAL [None]
